FAERS Safety Report 25247385 (Version 2)
Quarter: 2025Q2

REPORT INFORMATION
  Report Type: Other
  Country: US (occurrence: US)
  Receive Date: 20250428
  Receipt Date: 20250506
  Transmission Date: 20250716
  Serious: No
  Sender: TRAVERE THERAPEUTICS
  Company Number: US-TRAVERE-2025TVT00371

PATIENT
  Age: 58 Year
  Sex: Female

DRUGS (6)
  1. FILSPARI [Suspect]
     Active Substance: SPARSENTAN
     Indication: Chronic kidney disease
     Route: 048
     Dates: start: 20250316
  2. FILSPARI [Suspect]
     Active Substance: SPARSENTAN
     Indication: IgA nephropathy
     Route: 048
  3. JARDIANCE [Concomitant]
     Active Substance: EMPAGLIFLOZIN
  4. BUMEX [Concomitant]
     Active Substance: BUMETANIDE
  5. CYCLOSPORINE [Concomitant]
     Active Substance: CYCLOSPORINE
  6. PREDNISONE [Concomitant]
     Active Substance: PREDNISONE

REACTIONS (5)
  - Headache [Recovered/Resolved]
  - Hypotension [Unknown]
  - Tachycardia [Unknown]
  - Dizziness [None]
  - Oedema [Unknown]

NARRATIVE: CASE EVENT DATE: 20250316
